FAERS Safety Report 20331166 (Version 2)
Quarter: 2022Q2

REPORT INFORMATION
  Report Type: Spontaneous
  Country: US (occurrence: US)
  Receive Date: 20220113
  Receipt Date: 20220411
  Transmission Date: 20220720
  Serious: Yes (Hospitalization, Other)
  Sender: FDA-Public Use
  Company Number: US-GLAXOSMITHKLINE-US2022GSK003652

PATIENT
  Sex: Male

DRUGS (9)
  1. ZANTAC [Suspect]
     Active Substance: RANITIDINE HYDROCHLORIDE
     Indication: Gastrooesophageal reflux disease
     Dosage: 150 MG, WE
     Route: 065
     Dates: start: 2008, end: 2019
  2. ZANTAC [Suspect]
     Active Substance: RANITIDINE HYDROCHLORIDE
     Indication: Dyspepsia
  3. ZANTAC [Suspect]
     Active Substance: RANITIDINE HYDROCHLORIDE
     Indication: Gastrooesophageal reflux disease
     Dosage: 150 MG, WE
     Route: 065
     Dates: start: 2008, end: 2019
  4. RANITIDINE HYDROCHLORIDE [Suspect]
     Active Substance: RANITIDINE HYDROCHLORIDE
     Indication: Gastrooesophageal reflux disease
     Dosage: 150 MG, WE
     Route: 065
     Dates: start: 2008, end: 2019
  5. RANITIDINE HYDROCHLORIDE [Suspect]
     Active Substance: RANITIDINE HYDROCHLORIDE
     Indication: Dyspepsia
  6. RANITIDINE HYDROCHLORIDE [Suspect]
     Active Substance: RANITIDINE HYDROCHLORIDE
     Indication: Gastrooesophageal reflux disease
     Dosage: 150 MG, WE
     Route: 065
     Dates: start: 2008, end: 2019
  7. ZANTAC [Suspect]
     Active Substance: RANITIDINE HYDROCHLORIDE
     Indication: Gastrooesophageal reflux disease
     Dosage: 150 MG, WE
     Route: 065
     Dates: start: 2008, end: 2019
  8. RANITIDINE [Suspect]
     Active Substance: RANITIDINE
     Indication: Gastrooesophageal reflux disease
     Dosage: 150 MG, WE
     Route: 065
     Dates: start: 2008, end: 2019
  9. RANITIDINE [Suspect]
     Active Substance: RANITIDINE
     Indication: Gastrooesophageal reflux disease
     Dosage: 150 MG, WE
     Route: 065
     Dates: start: 2008, end: 2019

REACTIONS (19)
  - Bladder cancer recurrent [Unknown]
  - Bladder cancer [Unknown]
  - Urinary retention [Unknown]
  - Benign prostatic hyperplasia [Unknown]
  - Transitional cell carcinoma [Unknown]
  - Micturition urgency [Unknown]
  - Pollakiuria [Unknown]
  - Hypertonic bladder [Unknown]
  - Incontinence [Unknown]
  - Chromaturia [Unknown]
  - Nocturia [Unknown]
  - Dysuria [Unknown]
  - Bladder neoplasm [Unknown]
  - Renal cyst [Unknown]
  - Bladder mass [Unknown]
  - Calculus bladder [Unknown]
  - Haematuria [Unknown]
  - Benign neoplasm of bladder [Unknown]
  - Renal cyst [Unknown]
